FAERS Safety Report 6959540-3 (Version None)
Quarter: 2010Q3

REPORT INFORMATION
  Report Type: 
  Country: None (occurrence: None)
  Receive Date: 20100827
  Receipt Date: 20100819
  Transmission Date: 20110219
  Serious: Yes (Life-Threatening, Hospitalization, Disabling)
  Sender: FDA-Public Use
  Company Number: 2010MA001963

PATIENT
  Age: 75 Year
  Sex: Male

DRUGS (5)
  1. BICALUTAMIDE [Suspect]
     Indication: PROSTATE CANCER
  2. HJERTEMAGNYL [Concomitant]
  3. SOTALOL [Concomitant]
  4. GLUCOSAMINE [Concomitant]
  5. PREV MEDS [Concomitant]

REACTIONS (2)
  - EXTRADURAL HAEMATOMA [None]
  - SUBDURAL HAEMATOMA [None]
